FAERS Safety Report 6832792-6 (Version None)
Quarter: 2010Q3

REPORT INFORMATION
  Report Type: 
  Country: None (occurrence: None)
  Receive Date: 20100712
  Receipt Date: 20070321
  Transmission Date: 20110219
  Serious: No
  Sender: FDA-Public Use
  Company Number: US-PFIZER INC-2007023342

PATIENT
  Sex: Female
  Weight: 72.57 kg

DRUGS (4)
  1. CHANTIX [Suspect]
     Indication: SMOKING CESSATION THERAPY
     Dates: start: 20070214
  2. CLONAZEPAM [Concomitant]
     Indication: ANXIETY
  3. FLONASE [Concomitant]
  4. ALL OTHER THERAPEUTIC PRODUCTS [Concomitant]

REACTIONS (3)
  - FATIGUE [None]
  - MIDDLE INSOMNIA [None]
  - WEIGHT DECREASED [None]
